FAERS Safety Report 6840196-5 (Version None)
Quarter: 2010Q3

REPORT INFORMATION
  Report Type: 
  Country: None (occurrence: None)
  Receive Date: 20100713
  Receipt Date: 20100713
  Transmission Date: 20110219
  Serious: Yes (Life-Threatening)
  Sender: FDA-Public Use
  Company Number: None

PATIENT
  Sex: Male

DRUGS (1)
  1. CREST WHITESTRIPS DENTAL WHITENING SYSTEM HYDROGEN PEROXIDE 10%, 1 STR [Suspect]
     Dosage: UNKNOWN DOSE BEDTIME INTRAORAL
     Route: 048
     Dates: start: 20100620, end: 20100620

REACTIONS (4)
  - DRY THROAT [None]
  - DYSPNOEA [None]
  - HYPERSENSITIVITY [None]
  - SWOLLEN TONGUE [None]
